FAERS Safety Report 10523321 (Version 2)
Quarter: 2014Q4

REPORT INFORMATION
  Report Type: Spontaneous
  Country: JP (occurrence: JP)
  Receive Date: 20141016
  Receipt Date: 20141016
  Transmission Date: 20150528
  Serious: Yes (Other)
  Sender: FDA-Public Use
  Company Number: PHHY2014JP117526

PATIENT
  Age: 68 Year
  Sex: Female

DRUGS (1)
  1. NEORAL [Suspect]
     Active Substance: CYCLOSPORINE
     Indication: PUSTULAR PSORIASIS
     Route: 048
     Dates: end: 2011

REACTIONS (3)
  - Disease progression [Unknown]
  - Renal disorder [Unknown]
  - Glomerulonephritis chronic [Unknown]

NARRATIVE: CASE EVENT DATE: 2011
